FAERS Safety Report 6879639-X (Version None)
Quarter: 2010Q3

REPORT INFORMATION
  Report Type: 
  Country: None (occurrence: None)
  Receive Date: 20100728
  Receipt Date: 20090903
  Transmission Date: 20110219
  Serious: No
  Sender: FDA-Public Use
  Company Number: US-MYLANLABS-2009S1014109

PATIENT
  Age: 71 Year
  Sex: Female
  Weight: 117.94 kg

DRUGS (1)
  1. CLONIDINE HYDROCHLORIDE [Suspect]
     Indication: BLOOD PRESSURE INCREASED
     Dosage: THREE OCCASIONS ONLY
     Route: 048
     Dates: start: 20090713, end: 20090701

REACTIONS (2)
  - HYPERSOMNIA [None]
  - SOMNOLENCE [None]
